FAERS Safety Report 9444469 (Version 4)
Quarter: 2015Q2

REPORT INFORMATION
  Report Type: Spontaneous
  Country: US (occurrence: US)
  Receive Date: 20130807
  Receipt Date: 20150602
  Transmission Date: 20150821
  Serious: Yes (Hospitalization, Other)
  Sender: FDA-Public Use
  Company Number: US-BAYER-2013-094958

PATIENT
  Age: 32 Year
  Sex: Female
  Weight: 77.98 kg

DRUGS (2)
  1. PROZAC [Concomitant]
     Active Substance: FLUOXETINE HYDROCHLORIDE
  2. MIRENA [Suspect]
     Active Substance: LEVONORGESTREL
     Indication: CONTRACEPTION
     Dosage: 20 MCG/24HR, CONT
     Route: 015
     Dates: start: 20080724, end: 20121227

REACTIONS (8)
  - Device dislocation [None]
  - Pain [None]
  - Pregnancy with contraceptive device [None]
  - Injury [None]
  - Uterine perforation [None]
  - Drug ineffective [None]
  - Emotional distress [None]
  - Menorrhagia [Recovering/Resolving]

NARRATIVE: CASE EVENT DATE: 2011
